FAERS Safety Report 13485129 (Version 1)
Quarter: 2017Q2

REPORT INFORMATION
  Report Type: Spontaneous
  Country: US (occurrence: US)
  Receive Date: 20170426
  Receipt Date: 20170426
  Transmission Date: 20170830
  Serious: Yes (Other)
  Sender: FDA-Public Use
  Company Number: None

PATIENT
  Age: 43 Year
  Sex: Female
  Weight: 69.85 kg

DRUGS (8)
  1. GLYBURIDE. [Concomitant]
     Active Substance: GLYBURIDE
  2. POTASSIUM CHLORIDE. [Concomitant]
     Active Substance: POTASSIUM CHLORIDE
  3. LISINOPRIL. [Suspect]
     Active Substance: LISINOPRIL
     Dosage: 1 PER DAY DAILY ONE MOUTH
     Route: 048
  4. ATORVASTATIN [Concomitant]
     Active Substance: ATORVASTATIN
  5. LANCETS [Concomitant]
     Active Substance: DEVICE
  6. TIZANIDINE. [Concomitant]
     Active Substance: TIZANIDINE
  7. OXYCODONE [Concomitant]
     Active Substance: OXYCODONE
  8. HYDROCORTISONE. [Concomitant]
     Active Substance: HYDROCORTISONE

REACTIONS (5)
  - Pharyngeal erythema [None]
  - Headache [None]
  - Choking sensation [None]
  - Chest pain [None]
  - Arthritis [None]

NARRATIVE: CASE EVENT DATE: 20160515
